FAERS Safety Report 9787534 (Version 1)
Quarter: 2013Q4

REPORT INFORMATION
  Report Type: Spontaneous
  Country: CO (occurrence: CO)
  Receive Date: 20131230
  Receipt Date: 20131230
  Transmission Date: 20140711
  Serious: Yes (Other)
  Sender: FDA-Public Use
  Company Number: CO-JNJFOC-20131212838

PATIENT
  Age: 72 Year
  Sex: Male
  Weight: 61 kg

DRUGS (1)
  1. LISTERINE COOLMINT [Suspect]
     Indication: PRODUCT USED FOR UNKNOWN INDICATION
     Dosage: TWICE OR 3 TIMES DAILY
     Route: 002
     Dates: start: 20131204, end: 20131214

REACTIONS (4)
  - Blister [Recovering/Resolving]
  - Lip swelling [Recovering/Resolving]
  - Wrong technique in drug usage process [Recovered/Resolved]
  - Medication error [Recovered/Resolved]
